FAERS Safety Report 11428547 (Version 2)
Quarter: 2016Q1

REPORT INFORMATION
  Report Type: Report from Study
  Country: US (occurrence: US)
  Receive Date: 20150828
  Receipt Date: 20160224
  Transmission Date: 20160525
  Serious: No
  Sender: FDA-Public Use
  Company Number: US-AMGEN-USASL2015087399

PATIENT
  Age: 65 Year
  Sex: Male

DRUGS (1)
  1. ENBREL [Suspect]
     Active Substance: ETANERCEPT
     Indication: PSORIASIS
     Dosage: UNK
     Route: 065
     Dates: start: 20130725

REACTIONS (1)
  - Therapeutic response decreased [Recovering/Resolving]
